FAERS Safety Report 22020102 (Version 1)
Quarter: 2023Q1

REPORT INFORMATION
  Report Type: Spontaneous
  Country: CN (occurrence: CN)
  Receive Date: 20230222
  Receipt Date: 20230222
  Transmission Date: 20230417
  Serious: Yes (Other)
  Sender: FDA-Public Use
  Company Number: CN-PFIZER INC-PV202300028895

PATIENT
  Age: 75 Year
  Sex: Male
  Weight: 61 kg

DRUGS (13)
  1. NIRMATRELVIR\RITONAVIR [Interacting]
     Active Substance: NIRMATRELVIR\RITONAVIR
     Indication: COVID-19 treatment
     Dosage: [PF-07321332 300 MG]/[RITONAVIR 100 MG]; 2X/DAY
     Route: 048
     Dates: start: 20221220, end: 20221224
  2. ROSUVASTATIN [Interacting]
     Active Substance: ROSUVASTATIN
     Indication: Therapeutic procedure
     Dosage: 20 MG, 1X/DAY(EVERY NIGHT)
     Route: 048
     Dates: start: 20221221, end: 20221222
  3. METHYLPREDNISOLONE SODIUM SUCCINATE [Concomitant]
     Active Substance: METHYLPREDNISOLONE SODIUM SUCCINATE
     Dosage: 40 MG, 1X/DAY
     Route: 041
     Dates: start: 20221220, end: 20221224
  4. HUMAN IMMUNOGLOBULIN G [Concomitant]
     Active Substance: HUMAN IMMUNOGLOBULIN G
     Dosage: 25 G, 1X/DAY
     Route: 041
     Dates: start: 20221220, end: 20221222
  5. ENOXAPARIN SODIUM [Concomitant]
     Active Substance: ENOXAPARIN SODIUM
     Indication: Prophylaxis
     Dosage: 6000 IU, 1X/DAY
     Dates: start: 20221220, end: 20221222
  6. CEFTAZIDIME [Concomitant]
     Active Substance: CEFTAZIDIME
     Route: 041
  7. METOPROLOL TARTRATE [Concomitant]
     Active Substance: METOPROLOL TARTRATE
     Indication: Therapeutic procedure
     Dosage: 25 MG, 2X/DAY
     Route: 048
     Dates: start: 20221221
  8. AZITHROMYCIN [Concomitant]
     Active Substance: AZITHROMYCIN
     Route: 048
  9. CLOPIDOGREL [Concomitant]
     Active Substance: CLOPIDOGREL BISULFATE
     Indication: Antiplatelet therapy
     Dosage: 75 MG, 1X/DAY
     Route: 048
     Dates: start: 20221221
  10. INDOBUFEN [Concomitant]
     Active Substance: INDOBUFEN
     Indication: Antiplatelet therapy
     Dosage: 100 MG, 2X/DAY
     Route: 048
     Dates: start: 20221221
  11. AMLODIPINE [Concomitant]
     Active Substance: AMLODIPINE BESYLATE
     Indication: Hypertension
     Dosage: 2.5 MG (ADJUSTED)
  12. AMLODIPINE [Concomitant]
     Active Substance: AMLODIPINE BESYLATE
     Dosage: 5 MG, 2 DAYS AFTER COMPLETING TREATMENT WITH NIRMATRELVIR
     Dates: start: 20221226
  13. HYDROCHLOROTHIAZIDE [Concomitant]
     Active Substance: HYDROCHLOROTHIAZIDE
     Indication: Hypertension
     Dosage: UNK

REACTIONS (3)
  - Off label use [Unknown]
  - Drug interaction [Unknown]
  - Alanine aminotransferase increased [Unknown]
